FAERS Safety Report 13660886 (Version 1)
Quarter: 2017Q2

REPORT INFORMATION
  Report Type: Spontaneous
  Country: NL (occurrence: NL)
  Receive Date: 20170616
  Receipt Date: 20170616
  Transmission Date: 20170830
  Serious: Yes (Hospitalization)
  Sender: FDA-Public Use
  Company Number: NL-TEVA-779543ROM

PATIENT
  Age: 17 Year
  Sex: Female
  Weight: 58 kg

DRUGS (4)
  1. DIAZEPAM. [Suspect]
     Active Substance: DIAZEPAM
     Indication: PSYCHOGENIC SEIZURE
     Route: 042
     Dates: start: 201406
  2. DIPHANTOINE Z [Concomitant]
     Route: 065
  3. OXYGEN. [Concomitant]
     Active Substance: OXYGEN
     Route: 065
  4. MORFINE HCL [Concomitant]
     Route: 065

REACTIONS (2)
  - Amnesia [Recovered/Resolved]
  - Motor dysfunction [Recovered/Resolved]

NARRATIVE: CASE EVENT DATE: 201406
